FAERS Safety Report 6022591-X (Version None)
Quarter: 2008Q4

REPORT INFORMATION
  Report Type: 
  Country: None (occurrence: None)
  Receive Date: 20081230
  Receipt Date: 20081226
  Transmission Date: 20090506
  Serious: Yes (Hospitalization, Other)
  Sender: FDA-Public Use
  Company Number: PHHY2008JP24705

PATIENT
  Sex: Female
  Weight: 51 kg

DRUGS (7)
  1. LAMISIL [Suspect]
     Dosage: 125 MG/DAY
     Route: 048
     Dates: start: 20080821, end: 20080919
  2. GASTER D [Suspect]
     Dosage: 40 MG/DAY
     Route: 048
     Dates: start: 20080821, end: 20080919
  3. URSO 250 [Concomitant]
     Dosage: 150 G
  4. URSO 250 [Concomitant]
     Dosage: 6 TABLETS DIVIDED INTO 3 DOSES DAILY
  5. SAIKOKEISHITOU [Concomitant]
     Dosage: 7.5 G
     Dates: end: 20081223
  6. MEIACT [Concomitant]
     Dosage: 300 G
     Dates: end: 20081223
  7. CALONAL [Concomitant]
     Dosage: 400 G
     Dates: end: 20081223

REACTIONS (6)
  - BLOOD ALKALINE PHOSPHATASE INCREASED [None]
  - GENERAL PHYSICAL HEALTH DETERIORATION [None]
  - LIVER DISORDER [None]
  - LIVER FUNCTION TEST ABNORMAL [None]
  - LYMPHOCYTE STIMULATION TEST POSITIVE [None]
  - PYREXIA [None]
